FAERS Safety Report 6645577-0 (Version None)
Quarter: 2010Q1

REPORT INFORMATION
  Report Type: 
  Country: None (occurrence: None)
  Receive Date: 20100319
  Receipt Date: 20100319
  Transmission Date: 20100710
  Serious: No
  Sender: FDA-Public Use
  Company Number: None

PATIENT

DRUGS (1)
  1. PULMICORT [Suspect]

REACTIONS (6)
  - ANXIETY [None]
  - ASTHMA [None]
  - BRONCHITIS [None]
  - CONDITION AGGRAVATED [None]
  - CONSTIPATION [None]
  - PNEUMONIA [None]
